FAERS Safety Report 4975150-1 (Version None)
Quarter: 2006Q2

REPORT INFORMATION
  Report Type: 
  Country: None (occurrence: None)
  Receive Date: 20060418
  Receipt Date: 20060407
  Transmission Date: 20061013
  Serious: Yes (Death, Hospitalization, Other)
  Sender: FDA-Public Use
  Company Number: DE-JNJFOC-20060301092

PATIENT
  Sex: Female
  Weight: 21 kg

DRUGS (6)
  1. TOPAMAX [Suspect]
     Indication: EPILEPSY
     Route: 048
  2. VALPROIC ACID [Concomitant]
     Indication: EPILEPSY
     Route: 048
  3. CLOBAZAM [Concomitant]
     Indication: EPILEPSY
  4. BACLOFEN [Concomitant]
     Route: 037
  5. SAB SIMPLEX [Concomitant]
  6. LACTULOSE [Concomitant]

REACTIONS (8)
  - AMINOACIDURIA [None]
  - GLYCOSURIA [None]
  - HYPERPHOSPHATURIA [None]
  - HYPOPHOSPHATAEMIA [None]
  - OEDEMA [None]
  - PROTEIN-LOSING GASTROENTEROPATHY [None]
  - RENAL TUBULAR DISORDER [None]
  - RESPIRATORY FAILURE [None]
